FAERS Safety Report 10369386 (Version 1)
Quarter: 2014Q3

REPORT INFORMATION
  Report Type: Spontaneous
  Country: US (occurrence: US)
  Receive Date: 20140807
  Receipt Date: 20140807
  Transmission Date: 20150326
  Serious: Yes (Other)
  Sender: FDA-Public Use
  Company Number: US-ABBVIE-14P-163-1260929-00

PATIENT
  Sex: Male

DRUGS (32)
  1. HEMORRHOIDAL OINTMENT [Concomitant]
     Active Substance: MINERAL OIL\PETROLATUM\PHENYLEPHRINE HYDROCHLORIDE\SHARK LIVER OIL
     Indication: PRODUCT USED FOR UNKNOWN INDICATION
     Route: 061
     Dates: start: 20130508, end: 20130908
  2. METFORMIN [Concomitant]
     Active Substance: METFORMIN HYDROCHLORIDE
     Indication: PRODUCT USED FOR UNKNOWN INDICATION
     Dates: start: 20120613, end: 20130128
  3. DEPAKOTE ER [Suspect]
     Active Substance: DIVALPROEX SODIUM
  4. COLACE [Concomitant]
     Active Substance: DOCUSATE SODIUM
     Indication: PRODUCT USED FOR UNKNOWN INDICATION
     Dosage: BID PRN
     Dates: start: 20130508, end: 20130908
  5. HYDROCIL INSTANT [Concomitant]
     Indication: PRODUCT USED FOR UNKNOWN INDICATION
     Route: 048
     Dates: start: 20130508, end: 20130908
  6. GLUCOPHAGE [Concomitant]
     Active Substance: METFORMIN HYDROCHLORIDE
     Indication: PRODUCT USED FOR UNKNOWN INDICATION
     Route: 048
     Dates: start: 20130508, end: 20130908
  7. ZESTRIL [Concomitant]
     Active Substance: LISINOPRIL
     Indication: PRODUCT USED FOR UNKNOWN INDICATION
     Route: 048
     Dates: start: 20130508, end: 20130908
  8. LEVEMIR [Concomitant]
     Active Substance: INSULIN DETEMIR
     Indication: PRODUCT USED FOR UNKNOWN INDICATION
     Dosage: 100 UNIT/ML DOSE AT 12 UNITS PRN
     Dates: start: 20130508, end: 20130908
  9. HEMORRHOID SUPPOSITORY [Concomitant]
     Indication: PRODUCT USED FOR UNKNOWN INDICATION
     Dosage: PRN BID
     Dates: start: 20130508, end: 20130908
  10. NOVOLIN R [Concomitant]
     Active Substance: INSULIN HUMAN
     Indication: PRODUCT USED FOR UNKNOWN INDICATION
     Dosage: 100 UNIT/ML SLIDING SCALE
     Dates: start: 20130430, end: 20130730
  11. DIPHENHYDRAMINE HCL [Concomitant]
     Active Substance: DIPHENHYDRAMINE HYDROCHLORIDE
     Indication: PRODUCT USED FOR UNKNOWN INDICATION
     Dates: start: 20101201, end: 20110401
  12. ZANTAC [Concomitant]
     Active Substance: RANITIDINE HYDROCHLORIDE
     Indication: PRODUCT USED FOR UNKNOWN INDICATION
     Dosage: AT BEDTIME
     Route: 048
     Dates: start: 20130508, end: 20130908
  13. NIACIN. [Concomitant]
     Active Substance: NIACIN
     Indication: PRODUCT USED FOR UNKNOWN INDICATION
     Dosage: AT BEDTIME
     Dates: start: 20130508, end: 20130908
  14. SELENIUM SULFIDE. [Concomitant]
     Active Substance: SELENIUM SULFIDE
     Indication: PRODUCT USED FOR UNKNOWN INDICATION
     Route: 061
     Dates: start: 20120928, end: 20121219
  15. DEPAKOTE ER [Suspect]
     Active Substance: DIVALPROEX SODIUM
     Indication: PRODUCT USED FOR UNKNOWN INDICATION
     Route: 048
     Dates: start: 20030512
  16. DEPAKOTE ER [Suspect]
     Active Substance: DIVALPROEX SODIUM
     Dosage: QHS
     Dates: start: 20120924, end: 20130124
  17. DEPAKOTE ER [Suspect]
     Active Substance: DIVALPROEX SODIUM
     Dosage: QHS
     Dates: start: 20130413, end: 20130813
  18. NAPROSYN [Suspect]
     Active Substance: NAPROXEN
     Indication: ARTHRITIS
     Route: 048
     Dates: start: 20130508, end: 20130908
  19. NAPROSYN [Suspect]
     Active Substance: NAPROXEN
     Route: 048
     Dates: start: 20120928, end: 20130128
  20. DIPHENHYDRAMINE HCL [Concomitant]
     Active Substance: DIPHENHYDRAMINE HYDROCHLORIDE
     Dosage: 12.5/5ML; QHS
     Dates: start: 20120808, end: 20121013
  21. METOPROLOL TARTRATE. [Concomitant]
     Active Substance: METOPROLOL TARTRATE
     Route: 048
     Dates: start: 20120928, end: 20130128
  22. COMPLETE ALLERGY [Concomitant]
     Active Substance: DIPHENHYDRAMINE HYDROCHLORIDE
     Indication: PRODUCT USED FOR UNKNOWN INDICATION
     Dosage: 12.5 MG / 5 ML
     Dates: start: 20130413, end: 20130813
  23. GLIPIZIDE. [Concomitant]
     Active Substance: GLIPIZIDE
     Indication: PRODUCT USED FOR UNKNOWN INDICATION
     Route: 048
     Dates: start: 20120928, end: 20130515
  24. RANITIDINE [Concomitant]
     Active Substance: RANITIDINE\RANITIDINE HYDROCHLORIDE
     Indication: PRODUCT USED FOR UNKNOWN INDICATION
     Dates: start: 20120613, end: 20121013
  25. FERROUS SULFATE [Concomitant]
     Active Substance: FERROUS SULFATE\FERROUS SULFATE, DRIED
     Indication: PRODUCT USED FOR UNKNOWN INDICATION
     Dates: start: 20120613, end: 20121013
  26. LISINOPRIL. [Concomitant]
     Active Substance: LISINOPRIL
     Indication: PRODUCT USED FOR UNKNOWN INDICATION
     Dates: start: 20120613, end: 20130128
  27. METOPROLOL TARTRATE. [Concomitant]
     Active Substance: METOPROLOL TARTRATE
     Indication: PRODUCT USED FOR UNKNOWN INDICATION
     Route: 048
     Dates: start: 20130508, end: 20130908
  28. DEPAKOTE ER [Suspect]
     Active Substance: DIVALPROEX SODIUM
     Dosage: QHS
     Dates: start: 20120808, end: 20120923
  29. DEPAKOTE ER [Suspect]
     Active Substance: DIVALPROEX SODIUM
     Indication: PRODUCT USED FOR UNKNOWN INDICATION
     Dosage: QHS
     Dates: start: 20030512
  30. RISPERDAL [Concomitant]
     Active Substance: RISPERIDONE
     Indication: PRODUCT USED FOR UNKNOWN INDICATION
     Route: 048
     Dates: start: 20130413, end: 20130813
  31. ASPIRIN. [Concomitant]
     Active Substance: ASPIRIN
     Indication: PRODUCT USED FOR UNKNOWN INDICATION
     Route: 048
     Dates: start: 20130115, end: 20130515
  32. DOXEPIN [Concomitant]
     Active Substance: DOXEPIN
     Indication: PRODUCT USED FOR UNKNOWN INDICATION

REACTIONS (3)
  - Gastrointestinal disorder [Unknown]
  - Liver injury [Unknown]
  - Arthritis [Unknown]
